FAERS Safety Report 19092412 (Version 1)
Quarter: 2021Q2

REPORT INFORMATION
  Report Type: Report from Study
  Country: US (occurrence: US)
  Receive Date: 20210405
  Receipt Date: 20210405
  Transmission Date: 20210717
  Serious: Yes (Other)
  Sender: FDA-Public Use
  Company Number: US-ASTRAZENECA-2021A225092

PATIENT
  Age: 6263 Day
  Sex: Male
  Weight: 148.5 kg

DRUGS (3)
  1. CLINDAMYCIN FACE WASH [Concomitant]
     Route: 065
     Dates: start: 20210323
  2. HYDROXYZINE [Concomitant]
     Active Substance: HYDROXYZINE HYDROCHLORIDE
     Dosage: UNKNOWN
     Route: 065
  3. KOSELUGO [Suspect]
     Active Substance: SELUMETINIB
     Indication: OPTIC GLIOMA
     Route: 048
     Dates: start: 20210313, end: 20210325

REACTIONS (1)
  - Rash [Not Recovered/Not Resolved]

NARRATIVE: CASE EVENT DATE: 20210317
